FAERS Safety Report 21066817 (Version 3)
Quarter: 2022Q3

REPORT INFORMATION
  Report Type: Spontaneous
  Country: US (occurrence: US)
  Receive Date: 20220712
  Receipt Date: 20220829
  Transmission Date: 20221026
  Serious: No
  Sender: FDA-Public Use
  Company Number: US-TEVA-2022-US-2048983

PATIENT
  Age: 68 Year
  Sex: Male

DRUGS (1)
  1. PROAIR RESPICLICK [Suspect]
     Active Substance: ALBUTEROL SULFATE
     Indication: Product used for unknown indication
     Route: 065

REACTIONS (3)
  - Oropharyngeal discomfort [Unknown]
  - Dry mouth [Unknown]
  - Dry throat [Recovered/Resolved]

NARRATIVE: CASE EVENT DATE: 20220620
